FAERS Safety Report 20926196 (Version 1)
Quarter: 2022Q2

REPORT INFORMATION
  Report Type: Spontaneous
  Country: US (occurrence: US)
  Receive Date: 20220607
  Receipt Date: 20220607
  Transmission Date: 20220720
  Serious: No
  Sender: FDA-Public Use
  Company Number: US-MYLANLABS-2022M1036218

PATIENT
  Age: 68 Year
  Sex: Female
  Weight: 86.18 kg

DRUGS (2)
  1. COLCHICINE [Suspect]
     Active Substance: COLCHICINE
     Indication: Pericarditis
     Dosage: BID,TWICE A DAY
     Route: 048
     Dates: start: 20220506, end: 202205
  2. LEVOTHYROXINE [Concomitant]
     Active Substance: LEVOTHYROXINE
     Indication: Thyroid disorder
     Dosage: 100 MILLIGRAM, AM (100 MG TABLET TAKEN ONCE A DAY
     Route: 048

REACTIONS (2)
  - Diarrhoea [Recovered/Resolved]
  - Off label use [Unknown]

NARRATIVE: CASE EVENT DATE: 20220510
